FAERS Safety Report 12613982 (Version 1)
Quarter: 2016Q3

REPORT INFORMATION
  Report Type: Spontaneous
  Country: US (occurrence: None)
  Receive Date: 20160801
  Receipt Date: 20160801
  Transmission Date: 20161109
  Serious: Yes (Disabling)
  Sender: FDA-Public Use
  Company Number: None

PATIENT
  Age: 43 Year
  Sex: Female
  Weight: 65.77 kg

DRUGS (5)
  1. FLONASE [Concomitant]
     Active Substance: FLUTICASONE PROPIONATE
  2. ZURTEC [Concomitant]
  3. CIPROFLOXACIN. [Suspect]
     Active Substance: CIPROFLOXACIN
     Indication: TOOTH INFECTION
     Dosage: EVERY 12 HOURS
     Route: 048
     Dates: start: 20160714, end: 20160718
  4. DIVIGEL [Concomitant]
     Active Substance: ESTRADIOL
  5. PROGESTERONE. [Concomitant]
     Active Substance: PROGESTERONE

REACTIONS (11)
  - Middle insomnia [None]
  - Headache [None]
  - Somnolence [None]
  - Paraesthesia [None]
  - Palpitations [None]
  - Burning sensation [None]
  - Pain in extremity [None]
  - Cardiac flutter [None]
  - Tendon pain [None]
  - Arthralgia [None]
  - Muscular weakness [None]

NARRATIVE: CASE EVENT DATE: 20160718
